FAERS Safety Report 8172872-9 (Version None)
Quarter: 2012Q1

REPORT INFORMATION
  Report Type: 
  Country: None (occurrence: None)
  Receive Date: 20120229
  Receipt Date: 20120229
  Transmission Date: 20120608
  Serious: Yes (Hospitalization)
  Sender: FDA-Public Use
  Company Number: None

PATIENT
  Age: 29 Year
  Sex: Male
  Weight: 145.14 kg

DRUGS (2)
  1. LEXAPRO [Suspect]
     Indication: DEPRESSION
     Dosage: 250 MG
     Route: 048
     Dates: start: 20060101, end: 20090101
  2. VITAMIN TAB [Concomitant]
     Indication: SCHIZOAFFECTIVE DISORDER

REACTIONS (7)
  - NAUSEA [None]
  - NIGHTMARE [None]
  - SUICIDAL IDEATION [None]
  - CARDIAC VALVE DISEASE [None]
  - DEPRESSION [None]
  - NIGHT SWEATS [None]
  - DIABETES MELLITUS [None]
